FAERS Safety Report 5826286-4 (Version None)
Quarter: 2008Q3

REPORT INFORMATION
  Report Type: 
  Country: None (occurrence: None)
  Receive Date: 20080729
  Receipt Date: 20080714
  Transmission Date: 20090109
  Serious: No
  Sender: FDA-Public Use
  Company Number: GB-PFIZER INC-2008036520

PATIENT
  Age: 75 Year
  Sex: Female

DRUGS (1)
  1. LATANOPROST [Suspect]
     Indication: NORMAL TENSION GLAUCOMA

REACTIONS (1)
  - NO ADVERSE EVENT [None]
